FAERS Safety Report 9549383 (Version 1)
Quarter: 2013Q3

REPORT INFORMATION
  Report Type: Spontaneous
  Country: US (occurrence: US)
  Receive Date: 20130924
  Receipt Date: 20130924
  Transmission Date: 20140515
  Serious: Yes (Other)
  Sender: FDA-Public Use
  Company Number: US-ASTRAZENECA-2013SE69678

PATIENT
  Age: 32 Year
  Sex: Male
  Weight: 95.3 kg

DRUGS (2)
  1. ARIMIDEX [Suspect]
     Indication: SUPPLEMENTATION THERAPY
     Route: 048
     Dates: start: 201306, end: 2013
  2. TESTOSTERONE CYPIONATE [Concomitant]
     Dates: start: 201304

REACTIONS (3)
  - Hepatitis B [Recovering/Resolving]
  - Malaise [Recovering/Resolving]
  - Intentional drug misuse [Recovered/Resolved]
